FAERS Safety Report 20939602 (Version 1)
Quarter: 2022Q2

REPORT INFORMATION
  Report Type: Spontaneous
  Country: FR (occurrence: FR)
  Receive Date: 20220609
  Receipt Date: 20220609
  Transmission Date: 20220721
  Serious: Yes (Hospitalization)
  Sender: FDA-Public Use
  Company Number: None

PATIENT
  Age: 69 Year
  Sex: Male
  Weight: 90 kg

DRUGS (21)
  1. TRAMADOL HYDROCHLORIDE [Suspect]
     Active Substance: TRAMADOL HYDROCHLORIDE
     Indication: Analgesic therapy
     Dosage: 150 MILLIGRAM DAILY; 50MG 3/D,CHLORHYDRATE DE TRAMADOL ,  DURATION : 11 DAYS
     Route: 048
     Dates: start: 20220328, end: 20220408
  2. LINEZOLID [Suspect]
     Active Substance: LINEZOLID
     Indication: Lung disorder
     Dosage: 1200 MILLIGRAM DAILY; 600MG 2/D, DURATION 7 DAYS
     Route: 041
     Dates: start: 20220407, end: 20220414
  3. METHYLPREDNISOLONE [Suspect]
     Active Substance: METHYLPREDNISOLONE
     Indication: Hormone therapy
     Dosage: UNIT DOSE : 40 MG , FREQUENCY TIME : 1 DAYS , DURATION : 3 DAYS
     Route: 042
     Dates: start: 20220409, end: 20220412
  4. RITUXIMAB [Suspect]
     Active Substance: RITUXIMAB
     Indication: Richter^s syndrome
     Dosage: RITUXIMAB ((MAMMIFERE/HAMSTER/CHO CELLS)) , UNIT DOSE : 20 MG , FREQUENCY TIME : 1 DAYS , DURATION :
     Route: 041
     Dates: start: 20220412, end: 20220412
  5. CIPROFLOXACIN [Suspect]
     Active Substance: CIPROFLOXACIN
     Indication: Lung disorder
     Dosage: UNIT DOSE : 200 MG , FREQUENCY TIME : 1 DAYS , DURATION : 20 DAYS
     Route: 041
     Dates: start: 20220402, end: 20220422
  6. METRONIDAZOLE [Suspect]
     Active Substance: METRONIDAZOLE
     Indication: Tooth infection
     Dosage: 1500 MILLIGRAM DAILY; 500MG 3/D,  DURATION : 7 DAYS
     Route: 041
     Dates: start: 20220329, end: 20220405
  7. DORZOLAMIDE HYDROCHLORIDE [Concomitant]
     Active Substance: DORZOLAMIDE HYDROCHLORIDE
     Dosage: CHLORHYDRATE DE DORZOLAMIDE
  8. FUROSEMIDE [Concomitant]
     Active Substance: FUROSEMIDE
  9. TERBUTALINE SULFATE [Concomitant]
     Active Substance: TERBUTALINE SULFATE
     Dosage: SULFATE DE TERBUTALINE
  10. RISPERIDONE [Concomitant]
     Active Substance: RISPERIDONE
  11. OXYCODONE [Concomitant]
     Active Substance: OXYCODONE
  12. PIRACETAM [Concomitant]
     Active Substance: PIRACETAM
  13. ENALAPRIL MALEATE [Concomitant]
     Active Substance: ENALAPRIL MALEATE
     Dosage: ENALAPRIL (MALEATE D^)
  14. TRANEXAMIC ACID [Concomitant]
     Active Substance: TRANEXAMIC ACID
     Dosage: ACIDE TRANEXAMIQUE
  15. CLOBAZAM [Concomitant]
     Active Substance: CLOBAZAM
  16. ROSUVASTATIN [Concomitant]
     Active Substance: ROSUVASTATIN
  17. MORPHINE [Concomitant]
     Active Substance: MORPHINE
  18. PIPERACILLIN SODIUM\TAZOBACTAM SODIUM [Concomitant]
     Active Substance: PIPERACILLIN SODIUM\TAZOBACTAM SODIUM
  19. ATORVASTATIN [Concomitant]
     Active Substance: ATORVASTATIN
  20. ALLOPURINOL [Concomitant]
     Active Substance: ALLOPURINOL
  21. FLUCONAZOLE [Concomitant]
     Active Substance: FLUCONAZOLE

REACTIONS (3)
  - Hepatic cytolysis [Not Recovered/Not Resolved]
  - Cholestasis [Not Recovered/Not Resolved]
  - Leukopenia [Not Recovered/Not Resolved]

NARRATIVE: CASE EVENT DATE: 20220412
